FAERS Safety Report 20430437 (Version 1)
Quarter: 2022Q1

REPORT INFORMATION
  Report Type: Report from Study
  Country: FR (occurrence: FR)
  Receive Date: 20220204
  Receipt Date: 20220204
  Transmission Date: 20220423
  Serious: Yes (Hospitalization)
  Sender: FDA-Public Use
  Company Number: FR-SERVIER-S20008040

PATIENT

DRUGS (13)
  1. PEGASPARGASE [Suspect]
     Active Substance: PEGASPARGASE
     Indication: Acute lymphocytic leukaemia
     Dosage: 280 IU, ON D8
     Route: 042
     Dates: start: 20200803, end: 20200803
  2. TN UNSPECIFIED [Concomitant]
     Indication: Acute lymphocytic leukaemia
     Dosage: 1.0 MG, ON D1, D8
     Route: 042
     Dates: start: 20200727, end: 20200803
  3. TN UNSPECIFIED [Concomitant]
     Dosage: 1.0 MG, D43, D50
     Route: 042
     Dates: start: 20200921, end: 20200928
  4. TN UNSPECIFIED [Concomitant]
     Indication: Acute lymphocytic leukaemia
     Dosage: 17.5 MG, ON D1
     Route: 048
     Dates: start: 20200727, end: 20200727
  5. TN UNSPECIFIED [Concomitant]
     Dosage: 12 MG, D2
     Route: 037
     Dates: start: 20200728, end: 20200728
  6. TN UNSPECIFIED [Concomitant]
     Dosage: 12 MG, D31
     Route: 037
     Dates: start: 20200909, end: 20200909
  7. TN UNSPECIFIED [Concomitant]
     Indication: Acute lymphocytic leukaemia
     Dosage: 34 MG, FROM D1 TO D8
     Route: 048
     Dates: start: 20200727, end: 20200803
  8. TN UNSPECIFIED [Concomitant]
     Dosage: 40 MG, D29-D42
     Route: 048
     Dates: start: 20200907, end: 20200920
  9. TN UNSPECIFIED [Concomitant]
     Indication: Acute lymphocytic leukaemia
     Dosage: 4 MG, FROM D1 TO D5
     Route: 048
     Dates: start: 20200727, end: 20200803
  10. TN UNSPECIFIED [Concomitant]
     Indication: Acute lymphocytic leukaemia
     Dosage: 54 MG, D31-D34, D38-D41
     Route: 042
     Dates: start: 20200909, end: 20200919
  11. TN UNSPECIFIED [Concomitant]
     Dosage: 30 MG, D31
     Route: 037
     Dates: start: 20200909, end: 20200909
  12. TN UNSPECIFIED [Concomitant]
     Indication: Acute lymphocytic leukaemia
     Dosage: 720 MG, D29
     Route: 042
     Dates: start: 20200907, end: 20200907
  13. TN UNSPECIFIED [Concomitant]
     Indication: Acute lymphocytic leukaemia
     Dosage: 15 MG, D31
     Route: 037
     Dates: start: 20200909, end: 20200909

REACTIONS (2)
  - Hypersensitivity [Recovering/Resolving]
  - Bacteriuria [Not Recovered/Not Resolved]

NARRATIVE: CASE EVENT DATE: 20200803
